FAERS Safety Report 25586576 (Version 1)
Quarter: 2025Q3

REPORT INFORMATION
  Report Type: Spontaneous
  Country: US (occurrence: None)
  Receive Date: 20250721
  Receipt Date: 20250721
  Transmission Date: 20251021
  Serious: Yes (Hospitalization)
  Sender: FDA-CTU
  Company Number: None

PATIENT
  Age: 80 Year
  Sex: Male

DRUGS (1)
  1. ABIRATERONE ACETATE [Suspect]
     Active Substance: ABIRATERONE ACETATE
     Dosage: 1000MG ONCE DAILY

REACTIONS (6)
  - Loss of consciousness [None]
  - Asthenia [None]
  - Therapy cessation [None]
  - Pollakiuria [None]
  - Dysuria [None]
  - Libido decreased [None]
